FAERS Safety Report 16221488 (Version 2)
Quarter: 2019Q2

REPORT INFORMATION
  Report Type: Spontaneous
  Country: ES (occurrence: ES)
  Receive Date: 20190422
  Receipt Date: 20190506
  Transmission Date: 20190711
  Serious: Yes (Other)
  Sender: FDA-Public Use
  Company Number: ES-REGENERON PHARMACEUTICALS, INC.-2019-28110

PATIENT

DRUGS (3)
  1. EYLEA [Suspect]
     Active Substance: AFLIBERCEPT
     Dosage: 6 INJECTIONS
     Dates: end: 201612
  2. EYLEA [Suspect]
     Active Substance: AFLIBERCEPT
     Dosage: 1 INJECTION IN BOTH EYES
     Dates: start: 201805
  3. EYLEA [Suspect]
     Active Substance: AFLIBERCEPT
     Indication: CHORIORETINAL ATROPHY
     Dosage: 4 INJECTIONS

REACTIONS (4)
  - Product use in unapproved indication [Unknown]
  - Choroidal neovascularisation [Unknown]
  - Visual acuity reduced [Unknown]
  - Off label use [Unknown]
